FAERS Safety Report 25165587 (Version 1)
Quarter: 2025Q2

REPORT INFORMATION
  Report Type: Spontaneous
  Country: US (occurrence: US)
  Receive Date: 20250407
  Receipt Date: 20250407
  Transmission Date: 20250717
  Serious: Yes (Other)
  Sender: ROCHE
  Company Number: US-ROCHE-10000249816

PATIENT
  Sex: Female

DRUGS (1)
  1. XOLAIR PFS [Suspect]
     Active Substance: OMALIZUMAB
     Indication: Asthma
     Route: 058
     Dates: start: 202501

REACTIONS (2)
  - Hot flush [Unknown]
  - Anaphylactic reaction [Unknown]
